FAERS Safety Report 18508265 (Version 1)
Quarter: 2020Q4

REPORT INFORMATION
  Report Type: Spontaneous
  Country: US (occurrence: US)
  Receive Date: 20201116
  Receipt Date: 20201116
  Transmission Date: 20210114
  Serious: Yes (Life-Threatening, Hospitalization, Other)
  Sender: FDA-Public Use
  Company Number: US-ACELLA PHARMACEUTICALS, LLC-2095965

PATIENT
  Age: 61 Year
  Sex: Male

DRUGS (7)
  1. DILTIAZEM. [Suspect]
     Active Substance: DILTIAZEM
  2. ALLOPURINOL. [Suspect]
     Active Substance: ALLOPURINOL
  3. GABAPENTIN. [Suspect]
     Active Substance: GABAPENTIN
     Indication: INTENTIONAL OVERDOSE
  4. ALCOHOL. [Suspect]
     Active Substance: ALCOHOL
  5. SOTALOL. [Suspect]
     Active Substance: SOTALOL
  6. CLONIDINE. [Suspect]
     Active Substance: CLONIDINE
  7. SILDENAFIL. [Suspect]
     Active Substance: SILDENAFIL

REACTIONS (2)
  - Hypotension [Recovered/Resolved]
  - Bradycardia [Recovered/Resolved]
